FAERS Safety Report 13210040 (Version 1)
Quarter: 2017Q1

REPORT INFORMATION
  Report Type: Spontaneous
  Country: US (occurrence: US)
  Receive Date: 20170209
  Receipt Date: 20170209
  Transmission Date: 20170428
  Serious: No
  Sender: FDA-Public Use
  Company Number: None

PATIENT
  Age: 28 Year
  Sex: Female

DRUGS (1)
  1. HUMIRA [Suspect]
     Active Substance: ADALIMUMAB
     Indication: CROHN^S DISEASE
     Route: 058
     Dates: start: 20161226

REACTIONS (5)
  - Insomnia [None]
  - Psychotic disorder [None]
  - Nasal congestion [None]
  - Headache [None]
  - Depression [None]

NARRATIVE: CASE EVENT DATE: 20170208
